FAERS Safety Report 6128575-5 (Version None)
Quarter: 2009Q1

REPORT INFORMATION
  Report Type: 
  Country: None (occurrence: None)
  Receive Date: 20090323
  Receipt Date: 20090319
  Transmission Date: 20090719
  Serious: Yes (Death)
  Sender: FDA-Public Use
  Company Number: US-B.I. PHARMACEUTICALS,INC./RIDGEFIELD-2008-BP-18612BP

PATIENT
  Sex: Female
  Weight: 67 kg

DRUGS (3)
  1. MIRAPEX [Suspect]
     Indication: RESTLESS LEGS SYNDROME
     Dosage: .375MG
     Route: 048
     Dates: start: 20080613, end: 20081210
  2. SEROQUEL [Concomitant]
     Dosage: 200MG
     Dates: start: 20080512, end: 20081210
  3. CLONIDINE [Concomitant]
     Dates: start: 20080512, end: 20081210

REACTIONS (1)
  - ROAD TRAFFIC ACCIDENT [None]
